FAERS Safety Report 8180852-2 (Version None)
Quarter: 2012Q1

REPORT INFORMATION
  Report Type: 
  Country: None (occurrence: None)
  Receive Date: 20120302
  Receipt Date: 20120224
  Transmission Date: 20120608
  Serious: Yes (Other)
  Sender: FDA-Public Use
  Company Number: GB-UCBSA-052261

PATIENT
  Age: 51 Year
  Sex: Male

DRUGS (3)
  1. PHENELZINE [Suspect]
  2. ACETAMINOPHEN AND CODEINE PHOSPHATE [Suspect]
     Dosage: UNKNOWN DOSE
     Route: 048
  3. WARFARIN SODIUM [Concomitant]
     Route: 048
     Dates: start: 20110501

REACTIONS (5)
  - MORBID THOUGHTS [None]
  - FEELING ABNORMAL [None]
  - DEPRESSION [None]
  - SUICIDAL IDEATION [None]
  - HALLUCINATION [None]
